FAERS Safety Report 24870069 (Version 1)
Quarter: 2025Q1

REPORT INFORMATION
  Report Type: Spontaneous
  Country: US (occurrence: US)
  Receive Date: 20250121
  Receipt Date: 20250121
  Transmission Date: 20250408
  Serious: No
  Sender: ABBVIE
  Company Number: US-ABBVIE-6095289

PATIENT

DRUGS (2)
  1. REFRESH TEARS PF [Suspect]
     Active Substance: CARBOXYMETHYLCELLULOSE SODIUM\GLYCERIN
     Indication: Dry eye
     Route: 047
     Dates: start: 20241202
  2. REFRESH TEARS PF [Suspect]
     Active Substance: CARBOXYMETHYLCELLULOSE SODIUM\GLYCERIN
     Route: 047
     Dates: start: 20241209

REACTIONS (6)
  - Stress [Unknown]
  - Application site pain [Unknown]
  - Product odour abnormal [Unknown]
  - Headache [Unknown]
  - Drug ineffective [Unknown]
  - Product contamination [Unknown]

NARRATIVE: CASE EVENT DATE: 20241201
